FAERS Safety Report 9200914 (Version 4)
Quarter: 2014Q2

REPORT INFORMATION
  Report Type: Spontaneous
  Country: US (occurrence: US)
  Receive Date: 20130401
  Receipt Date: 20140515
  Transmission Date: 20141212
  Serious: Yes (Hospitalization, Disabling)
  Sender: FDA-Public Use
  Company Number: US-BAYER-2013-039875

PATIENT
  Age: 21 Year
  Sex: Female
  Weight: 50.79 kg

DRUGS (1)
  1. MIRENA [Suspect]
     Indication: CONTRACEPTION
     Dosage: 20 MCG/24HR, CONT
     Route: 015
     Dates: start: 201008, end: 20130222

REACTIONS (19)
  - Uterine perforation [None]
  - Infection [None]
  - Menorrhagia [None]
  - Uterine inflammation [None]
  - Injury [None]
  - Weight decreased [None]
  - Pain [None]
  - General physical health deterioration [None]
  - Anxiety [None]
  - Emotional distress [None]
  - Anhedonia [None]
  - Deformity [None]
  - Fear of death [None]
  - Internal injury [None]
  - Abdominal pain upper [None]
  - Uterine pain [None]
  - Depression [None]
  - Mood altered [None]
  - Nervousness [None]
